FAERS Safety Report 22636250 (Version 1)
Quarter: 2023Q2

REPORT INFORMATION
  Report Type: Spontaneous
  Country: US (occurrence: US)
  Receive Date: 20230623
  Receipt Date: 20230623
  Transmission Date: 20230721
  Serious: Yes (Other)
  Sender: FDA-Public Use
  Company Number: US-TEVA-2023-US-2898740

PATIENT
  Age: 55 Year
  Sex: Female

DRUGS (3)
  1. DOXAZOSIN [Suspect]
     Active Substance: DOXAZOSIN MESYLATE
     Indication: Hypertension
     Route: 065
  2. JYNARQUE [Suspect]
     Active Substance: TOLVAPTAN
     Indication: Congenital cystic kidney disease
     Route: 065
     Dates: start: 20230120
  3. JYNARQUE [Suspect]
     Active Substance: TOLVAPTAN
     Route: 065
     Dates: start: 20230121

REACTIONS (12)
  - Hypertensive crisis [Not Recovered/Not Resolved]
  - Diverticulum [Unknown]
  - Gastrointestinal tract mucosal pigmentation [Unknown]
  - Hypersomnia [Not Recovered/Not Resolved]
  - Impaired work ability [Not Recovered/Not Resolved]
  - Vertigo [Unknown]
  - Nausea [Not Recovered/Not Resolved]
  - Weight increased [Not Recovered/Not Resolved]
  - Fatigue [Unknown]
  - Dizziness [Unknown]
  - Polyuria [Unknown]
  - Endoscopy gastrointestinal [Unknown]

NARRATIVE: CASE EVENT DATE: 20230123
